FAERS Safety Report 13956077 (Version 6)
Quarter: 2019Q1

REPORT INFORMATION
  Report Type: Spontaneous
  Country: US (occurrence: US)
  Receive Date: 20170911
  Receipt Date: 20190121
  Transmission Date: 20190417
  Serious: Yes (Hospitalization, Other)
  Sender: FDA-Public Use
  Company Number: US-DSJP-DSU-2017-136467

PATIENT

DRUGS (2)
  1. BENICAR [Suspect]
     Active Substance: OLMESARTAN MEDOXOMIL
     Indication: HYPERTENSION
     Dosage: 40 MG, QD
  2. BENICAR [Suspect]
     Active Substance: OLMESARTAN MEDOXOMIL
     Dosage: 20 MG, QD
     Route: 048
     Dates: start: 20130328, end: 20150213

REACTIONS (5)
  - Irritable bowel syndrome [Unknown]
  - Coeliac disease [Recovering/Resolving]
  - Acute kidney injury [Recovering/Resolving]
  - Diverticulum [Unknown]
  - Sprue-like enteropathy [Unknown]

NARRATIVE: CASE EVENT DATE: 20121031
